FAERS Safety Report 7986768-6 (Version None)
Quarter: 2011Q4

REPORT INFORMATION
  Report Type: 
  Country: None (occurrence: None)
  Receive Date: 20111216
  Receipt Date: 20111213
  Transmission Date: 20120403
  Serious: Yes (Hospitalization)
  Sender: FDA-Public Use
  Company Number: DE-ABBOTT-11P-062-0726923-00

PATIENT
  Sex: Female
  Weight: 53 kg

DRUGS (3)
  1. ARAVA [Concomitant]
     Indication: ANKYLOSING SPONDYLITIS
     Dosage: 20 MG DAILY
     Route: 048
     Dates: start: 20060601
  2. HUMIRA [Suspect]
     Indication: ANKYLOSING SPONDYLITIS
     Route: 058
     Dates: start: 20100107, end: 20110301
  3. HUMIRA [Suspect]
     Route: 058
     Dates: start: 20110412

REACTIONS (1)
  - OSTEOARTHRITIS [None]
